FAERS Safety Report 21224057 (Version 1)
Quarter: 2022Q3

REPORT INFORMATION
  Report Type: Spontaneous
  Country: US (occurrence: US)
  Receive Date: 20220817
  Receipt Date: 20220817
  Transmission Date: 20221026
  Serious: No
  Sender: FDA-Public Use
  Company Number: US-SA-2022MK000057

PATIENT
  Age: 48 Year
  Sex: Female
  Weight: 75.818 kg

DRUGS (5)
  1. AFREZZA [Suspect]
     Active Substance: INSULIN HUMAN
     Indication: Type 1 diabetes mellitus
     Dosage: 12-16 UNITS INHALED AT MEALS
     Dates: start: 202110
  2. AFREZZA [Suspect]
     Active Substance: INSULIN HUMAN
     Dosage: 12-16 UNITS INHALED AT MEALS
     Dates: start: 202110
  3. AFREZZA [Suspect]
     Active Substance: INSULIN HUMAN
     Dosage: 12-16 UNITS INHALED AT MEALS
     Dates: start: 202110
  4. HUMALOG [Concomitant]
     Active Substance: INSULIN LISPRO
     Indication: Type 1 diabetes mellitus
     Dosage: 2.25 UNITS SUB-Q VIA PUMP PER HOUR WITH CORRECTION 1.35 UNITS
     Dates: start: 202109
  5. SYNTHROID [Concomitant]
     Active Substance: LEVOTHYROXINE SODIUM
     Route: 048
     Dates: start: 2010

REACTIONS (3)
  - Blood glucose increased [Unknown]
  - Nasopharyngitis [Unknown]
  - Product residue present [Unknown]
